FAERS Safety Report 16764759 (Version 5)
Quarter: 2020Q1

REPORT INFORMATION
  Report Type: Report from Study
  Country: None (occurrence: US)
  Receive Date: 20190903
  Receipt Date: 20200318
  Transmission Date: 20200409
  Serious: Yes (Hospitalization, Other)
  Sender: FDA-Public Use
  Company Number: US-ABBVIE-19K-163-2903878-00

PATIENT
  Sex: Female

DRUGS (3)
  1. HUMIRA [Suspect]
     Active Substance: ADALIMUMAB
     Indication: PSORIATIC ARTHROPATHY
     Dosage: CITRATE FREE
     Route: 058
  2. SULFUR. [Suspect]
     Active Substance: SULFUR
     Indication: PRODUCT USED FOR UNKNOWN INDICATION
     Route: 065
  3. REMICADE [Suspect]
     Active Substance: INFLIXIMAB
     Indication: PRODUCT USED FOR UNKNOWN INDICATION
     Route: 065

REACTIONS (18)
  - Drug hypersensitivity [Recovered/Resolved]
  - Food allergy [Not Recovered/Not Resolved]
  - Sinus disorder [Recovered/Resolved]
  - Hypertension [Recovered/Resolved]
  - Pharyngitis [Recovered/Resolved]
  - Hepatic enzyme increased [Recovered/Resolved]
  - Immune system disorder [Not Recovered/Not Resolved]
  - Erythema [Recovered/Resolved]
  - Autoimmune disorder [Recovering/Resolving]
  - Ear infection [Recovered/Resolved]
  - Cutaneous lupus erythematosus [Unknown]
  - Tympanic membrane perforation [Recovered/Resolved]
  - Nausea [Not Recovered/Not Resolved]
  - Impaired gastric emptying [Not Recovered/Not Resolved]
  - Psoriatic arthropathy [Not Recovered/Not Resolved]
  - Vomiting [Not Recovered/Not Resolved]
  - Diarrhoea [Recovered/Resolved]
  - Gastrooesophageal reflux disease [Recovered/Resolved]

NARRATIVE: CASE EVENT DATE: 2009
